FAERS Safety Report 7095425-2 (Version None)
Quarter: 2010Q4

REPORT INFORMATION
  Report Type: 
  Country: None (occurrence: None)
  Receive Date: 20101111
  Receipt Date: 20101108
  Transmission Date: 20110411
  Serious: Yes (Death, Life-Threatening, Hospitalization)
  Sender: FDA-Public Use
  Company Number: EG-BRISTOL-MYERS SQUIBB COMPANY-15373079

PATIENT
  Age: 40 Year
  Sex: Male
  Weight: 86 kg

DRUGS (6)
  1. CISPLATIN [Suspect]
     Indication: NON-SMALL CELL LUNG CANCER
     Dosage: ACTUAL DOSE:135.75MG DISCONTINUED FORM STUDY ON 25APR2009
     Route: 042
     Dates: start: 20090130, end: 20090313
  2. ALIMTA [Suspect]
     Indication: NON-SMALL CELL LUNG CANCER
     Dosage: ACTUAL DOSE:905MG DISCONTINUED FORM STUDY ON 25APR2009
     Route: 042
     Dates: start: 20090130, end: 20090313
  3. FOLIC ACID [Concomitant]
     Indication: PROPHYLAXIS
  4. DEXAMETHASONE [Concomitant]
     Indication: PROPHYLAXIS
     Dates: start: 20090312, end: 20090314
  5. VITAMIN B-12 [Concomitant]
     Indication: PROPHYLAXIS
     Dates: start: 20090128
  6. KYTRIL [Concomitant]

REACTIONS (1)
  - HAEMATEMESIS [None]
